FAERS Safety Report 15883518 (Version 1)
Quarter: 2019Q1

REPORT INFORMATION
  Report Type: Spontaneous
  Country: US (occurrence: US)
  Receive Date: 20190129
  Receipt Date: 20190129
  Transmission Date: 20190417
  Serious: No
  Sender: FDA-Public Use
  Company Number: US-TEVA-2019-US-995001

PATIENT
  Age: 34 Year
  Sex: Female

DRUGS (1)
  1. TRI-LO-SPRINTEC [Suspect]
     Active Substance: ETHINYL ESTRADIOL\NORGESTIMATE
     Indication: CONTRACEPTION
     Dosage: DOSE STRENGTH:  0.18/0.25; 0.215/0.035; 0.250/
     Route: 065

REACTIONS (2)
  - Menstrual disorder [Unknown]
  - Product substitution issue [Unknown]
